FAERS Safety Report 6201328-5 (Version None)
Quarter: 2009Q2

REPORT INFORMATION
  Report Type: 
  Country: None (occurrence: None)
  Receive Date: 20090526
  Receipt Date: 20090515
  Transmission Date: 20091009
  Serious: Yes (Other)
  Sender: FDA-Public Use
  Company Number: PHHY2009JP07842

PATIENT
  Sex: Male
  Weight: 81 kg

DRUGS (8)
  1. DIOVAN T30230+TAB+HY [Suspect]
     Dosage: 80 MG, ONCE/SINGLE
     Route: 048
     Dates: start: 20071011, end: 20071204
  2. DIOVAN T30230+TAB+HY [Suspect]
     Dosage: 80 MG, BID
     Route: 048
     Dates: start: 20071205, end: 20081015
  3. DIOVAN T30230+TAB+HY [Suspect]
     Dosage: 80 MG, ONCE/SINGLE
     Route: 048
     Dates: start: 20081016
  4. TENORMIN [Concomitant]
     Indication: HYPERTENSION
     Dosage: 25 MG, UNK
     Route: 048
     Dates: start: 20070703, end: 20070904
  5. MERCAZOLE [Concomitant]
     Dosage: 5 MG, UNK
     Route: 048
     Dates: start: 20070711
  6. MERCAZOLE [Concomitant]
     Dosage: 2.5 MG, UNK
     Route: 048
  7. CRESTOR [Concomitant]
     Dosage: 2.5 MG, UNK
     Route: 048
     Dates: start: 20071010, end: 20071204
  8. MEVALOTIN [Concomitant]
     Dosage: 10 MG, UNK
     Route: 048
     Dates: start: 20071205

REACTIONS (4)
  - BLOOD CREATININE INCREASED [None]
  - BLOOD TRIGLYCERIDES INCREASED [None]
  - BLOOD UREA INCREASED [None]
  - BLOOD URIC ACID INCREASED [None]
